FAERS Safety Report 11520167 (Version 1)
Quarter: 2015Q3

REPORT INFORMATION
  Report Type: Spontaneous
  Country: US (occurrence: None)
  Receive Date: 20150917
  Receipt Date: 20150917
  Transmission Date: 20151125
  Serious: Yes (Disabling)
  Sender: FDA-Public Use
  Company Number: None

PATIENT
  Age: 58 Year
  Sex: Female
  Weight: 94.8 kg

DRUGS (7)
  1. LEVEMIR [Concomitant]
     Active Substance: INSULIN DETEMIR
  2. MAGNESIUM [Concomitant]
     Active Substance: MAGNESIUM
  3. JANUMET [Suspect]
     Active Substance: METFORMIN HYDROCHLORIDE\SITAGLIPTIN PHOSPHATE
     Indication: TYPE 2 DIABETES MELLITUS
     Route: 048
     Dates: start: 20140331, end: 20150912
  4. VIT. B COMPLEX [Concomitant]
  5. D [Concomitant]
  6. METAFORIN [Concomitant]
  7. OMEGA 3 [Concomitant]
     Active Substance: OMEGA-3 FATTY ACIDS

REACTIONS (5)
  - Arthralgia [None]
  - Insomnia [None]
  - Gait disturbance [None]
  - Impaired work ability [None]
  - Muscular weakness [None]

NARRATIVE: CASE EVENT DATE: 20150916
